FAERS Safety Report 12388434 (Version 1)
Quarter: 2016Q2

REPORT INFORMATION
  Report Type: Spontaneous
  Country: US (occurrence: None)
  Receive Date: 20160519
  Receipt Date: 20160519
  Transmission Date: 20160815
  Serious: Yes (Hospitalization)
  Sender: FDA-Public Use
  Company Number: None

PATIENT
  Age: 65 Year
  Sex: Female
  Weight: 98 kg

DRUGS (2)
  1. CARBOPLATIN. [Suspect]
     Active Substance: CARBOPLATIN
     Dates: end: 20120910
  2. TAXOL [Suspect]
     Active Substance: PACLITAXEL
     Dates: end: 20120910

REACTIONS (2)
  - Mental status changes [None]
  - Delirium [None]

NARRATIVE: CASE EVENT DATE: 20120921
